FAERS Safety Report 5010171-4 (Version None)
Quarter: 2006Q2

REPORT INFORMATION
  Report Type: 
  Country: None (occurrence: None)
  Receive Date: 20060404
  Receipt Date: 20051214
  Transmission Date: 20061013
  Serious: No
  Sender: FDA-Public Use
  Company Number: US200512002360

PATIENT
  Age: 67 Year
  Sex: Female

DRUGS (5)
  1. CYMBALTA [Suspect]
     Dosage: 40 MG
     Dates: start: 20051208, end: 20051212
  2. METAMUCIL ^SEARLE^ (PSYLLIUM HYDROPHILIC MUCILLOID) [Concomitant]
  3. MILK OF MAGNESIA TAB [Concomitant]
  4. DULOCLAX (BISACODYL) [Concomitant]
  5. FIBERCON (POLYCARBOPHIL CALCIUM) [Concomitant]

REACTIONS (2)
  - DIZZINESS [None]
  - FALL [None]
